FAERS Safety Report 8924096 (Version 1)
Quarter: 2012Q4

REPORT INFORMATION
  Report Type: Spontaneous
  Country: US (occurrence: None)
  Receive Date: 20121127
  Receipt Date: 20121127
  Transmission Date: 20130627
  Serious: No
  Sender: FDA-Public Use
  Company Number: None

PATIENT
  Age: 48 Year
  Sex: Female
  Weight: 86.18 kg

DRUGS (5)
  1. BETAMETHASONE [Suspect]
     Dates: start: 20120820, end: 20120820
  2. FENTANYL [Suspect]
     Dates: start: 20120820, end: 20120820
  3. SYNTHROID [Concomitant]
  4. NEXIUM [Concomitant]
  5. ZYRTEC [Concomitant]

REACTIONS (12)
  - Headache [None]
  - Injection site erythema [None]
  - Poor quality sleep [None]
  - Erythema [None]
  - Erythema [None]
  - Feeling hot [None]
  - Neck pain [None]
  - Hypoaesthesia [None]
  - Discomfort [None]
  - Condition aggravated [None]
  - Spinal pain [None]
  - Sinusitis [None]
